FAERS Safety Report 7577220-0 (Version None)
Quarter: 2011Q2

REPORT INFORMATION
  Report Type: 
  Country: None (occurrence: None)
  Receive Date: 20110628
  Receipt Date: 20110620
  Transmission Date: 20111010
  Serious: Yes (Other)
  Sender: FDA-Public Use
  Company Number: JP-BAYER-2011-049356

PATIENT
  Age: 60 Year
  Sex: Female
  Weight: 67 kg

DRUGS (2)
  1. CRESTOR [Concomitant]
     Indication: DYSLIPIDAEMIA
     Dosage: DAILY DOSE 2.5 MG
     Route: 048
     Dates: start: 20110330
  2. GLUCOBAY [Suspect]
     Indication: TYPE 2 DIABETES MELLITUS
     Dosage: 50 MG, TID
     Route: 048
     Dates: start: 20110602, end: 20110603

REACTIONS (4)
  - HAEMATOCHEZIA [None]
  - DIARRHOEA [None]
  - COLD SWEAT [None]
  - VOMITING [None]
